FAERS Safety Report 9465493 (Version 2)
Quarter: 2013Q4

REPORT INFORMATION
  Report Type: Report from Study
  Country: US (occurrence: US)
  Receive Date: 20130820
  Receipt Date: 20131114
  Transmission Date: 20140711
  Serious: Yes (Other)
  Sender: FDA-Public Use
  Company Number: PHEH2013US017361

PATIENT
  Age: 51 Year
  Sex: Female

DRUGS (1)
  1. FEMARA [Suspect]
     Indication: BREAST CANCER METASTATIC
     Dosage: 2.5 MG, DAILY
     Route: 048
     Dates: start: 20110107, end: 20120720

REACTIONS (7)
  - Neuropathy peripheral [Unknown]
  - Brain neoplasm [Unknown]
  - Breast cancer [Recovered/Resolved with Sequelae]
  - Malignant neoplasm progression [Recovered/Resolved with Sequelae]
  - Metastases to lung [Unknown]
  - Metastases to liver [Unknown]
  - Metastases to central nervous system [Unknown]
